FAERS Safety Report 20200985 (Version 1)
Quarter: 2021Q4

REPORT INFORMATION
  Report Type: Spontaneous
  Country: PL (occurrence: PL)
  Receive Date: 20211217
  Receipt Date: 20211217
  Transmission Date: 20220303
  Serious: Yes (Other)
  Sender: FDA-Public Use
  Company Number: PL-ORG100013321-2021001347

PATIENT
  Age: 73 Year
  Sex: Male

DRUGS (9)
  1. ACYCLOVIR [Suspect]
     Active Substance: ACYCLOVIR
     Indication: Antiviral prophylaxis
     Dosage: UNK
     Dates: start: 201707
  2. PAMIDRONATE [Suspect]
     Active Substance: PAMIDRONATE DISODIUM
     Indication: Supportive care
     Dosage: UNK
     Dates: start: 201707
  3. ENOXAPARIN [Suspect]
     Active Substance: ENOXAPARIN
     Indication: Prophylaxis
     Dosage: UNK
     Route: 058
     Dates: start: 201707
  4. DEXAMETHASONE [Suspect]
     Active Substance: DEXAMETHASONE
     Indication: Plasma cell myeloma
     Dosage: 20 MILLIGRAM (20 MG ON DAYS 1-4 AND 8-11 OF 28-DAY TREATMENT CYCLES.)
     Dates: start: 201707
  5. DEXAMETHASONE [Suspect]
     Active Substance: DEXAMETHASONE
     Dosage: 10 MILLIGRAM (10 MG ON DAYS 1-4 AND 8-11 FROM CYCLE 4)
  6. DEXAMETHASONE [Suspect]
     Active Substance: DEXAMETHASONE
     Dosage: 20 MILLIGRAM (20 MG ON DAYS 1, 8, 15 AND 22 )
  7. BORTEZOMIB [Suspect]
     Active Substance: BORTEZOMIB
     Indication: Plasma cell myeloma
     Dosage: 1.3 MILLIGRAM/SQ. METER (1.3 MG/M2 ON DAYS 1, 4, 8, AND 11 )
     Dates: start: 201707
  8. SULFAMETHOXAZOLE\TRIMETHOPRIM [Suspect]
     Active Substance: SULFAMETHOXAZOLE\TRIMETHOPRIM
     Indication: Antibiotic prophylaxis
     Dosage: UNK
     Dates: start: 201707
  9. THALIDOMIDE [Suspect]
     Active Substance: THALIDOMIDE
     Indication: Plasma cell myeloma
     Dosage: 100 MILLIGRAM, QD
     Dates: start: 201707

REACTIONS (5)
  - Polyneuropathy [Recovering/Resolving]
  - Oedema peripheral [Unknown]
  - Neutropenia [Unknown]
  - Constipation [Unknown]
  - Therapeutic product effect incomplete [Unknown]
